FAERS Safety Report 16899512 (Version 1)
Quarter: 2019Q4

REPORT INFORMATION
  Report Type: Report from Study
  Country: ES (occurrence: ES)
  Receive Date: 20191009
  Receipt Date: 20191009
  Transmission Date: 20200122
  Serious: Yes (Death, Hospitalization)
  Sender: FDA-Public Use
  Company Number: ES-ACTELION-A-CH2019-196425

PATIENT
  Age: 45 Year
  Sex: Male

DRUGS (2)
  1. SILDENAFIL. [Suspect]
     Active Substance: SILDENAFIL
     Indication: PORTOPULMONARY HYPERTENSION
     Dosage: 20 MG, BID
     Route: 048
     Dates: start: 201808, end: 201908
  2. TRACLEER [Suspect]
     Active Substance: BOSENTAN
     Indication: PORTOPULMONARY HYPERTENSION
     Dosage: 125 MG, BID
     Route: 048
     Dates: start: 201808, end: 201908

REACTIONS (2)
  - Hepatic cirrhosis [Fatal]
  - Haemorrhage [Fatal]

NARRATIVE: CASE EVENT DATE: 201908
